FAERS Safety Report 6915891-X (Version None)
Quarter: 2010Q3

REPORT INFORMATION
  Report Type: 
  Country: None (occurrence: None)
  Receive Date: 20100804
  Receipt Date: 20100722
  Transmission Date: 20110219
  Serious: Yes (Other)
  Sender: FDA-Public Use
  Company Number: IPC201007-000225

PATIENT
  Age: 60 Year
  Sex: Male
  Weight: 106 kg

DRUGS (14)
  1. HYDROCHLOROTHIAZIDE (HYDROCHLOROTHIAZIDE) (TABLETS) (HYDROCHLOROTHIAZI [Suspect]
     Dosage: ONCE A DAY
  2. PREGABALIN (CAPSULES) [Suspect]
     Indication: PAIN
     Dosage: 150 MG, 2 IN 1 D, ORAL
     Route: 048
     Dates: start: 20061101
  3. VERAPAMIL HYDROCHLORIDE CAPLET (TABLETS) [Suspect]
  4. AMIODARONE [Suspect]
     Dosage: 200 MG ONCE A DAY
  5. TAMSULOSIN HCL [Suspect]
     Dosage: 0.4MG RETARD ONCE A DAY
  6. FENTANYL [Suspect]
     Dosage: 250UG/H PLASTER (EVERY 3RD DAY)
  7. MORPHINE SULFATE [Concomitant]
  8. TORSEMIDE [Concomitant]
  9. PHENPROCOUMON [Concomitant]
  10. NITROGLYCERIN [Concomitant]
  11. CARBIMAZOLE [Concomitant]
  12. AMITRIPTYLINE HYDROCHLORIDE [Concomitant]
  13. METAMIZOLE [Concomitant]
  14. RAMIPRIL [Concomitant]

REACTIONS (6)
  - DRUG INTERACTION [None]
  - FEELING COLD [None]
  - IMPAIRED HEALING [None]
  - OEDEMA [None]
  - OEDEMA PERIPHERAL [None]
  - WOUND SECRETION [None]
